FAERS Safety Report 26045566 (Version 1)
Quarter: 2025Q4

REPORT INFORMATION
  Report Type: Report from Study
  Country: US (occurrence: US)
  Receive Date: 20251114
  Receipt Date: 20251114
  Transmission Date: 20260118
  Serious: Yes (Hospitalization)
  Sender: RECORDATI
  Company Number: US-RECORDATI-2023008599

PATIENT
  Age: 2 Year
  Sex: Female
  Weight: 11.8 kg

DRUGS (44)
  1. CARBAGLU [Suspect]
     Active Substance: CARGLUMIC ACID
     Indication: Propionic acidaemia
     Dosage: UNK
  2. CARBAGLU [Suspect]
     Active Substance: CARGLUMIC ACID
     Dosage: 800 MILLIGRAM (4 TABLETS), TID
     Route: 048
     Dates: start: 20231209, end: 202312
  3. CARBAGLU [Suspect]
     Active Substance: CARGLUMIC ACID
     Dosage: 500 MILLIGRAM (2.5 TABLET), BID
     Dates: start: 202312
  4. CARBAGLU [Suspect]
     Active Substance: CARGLUMIC ACID
     Dosage: 1000 MILLIGRAM, TID (5 TABLETS)
     Dates: start: 20240118
  5. ACLOVATE [Concomitant]
     Active Substance: ALCLOMETASONE DIPROPIONATE
     Indication: Product used for unknown indication
     Dosage: APPLY TO AFFECTED AREAS OF FACE/EARS/FOLDS, BID (0.05 % OINTMENT)
     Dates: start: 20230804
  6. ASPIRIN [Concomitant]
     Active Substance: ASPIRIN
     Indication: Product used for unknown indication
     Dosage: 1 CHEWABLE TABLET (81 MG TOTAL) BY MOUTH DAILY FOR 360 DAY (CHEWABLE TABLET)
     Route: 048
     Dates: start: 20231115
  7. ASPIRIN [Concomitant]
     Active Substance: ASPIRIN
     Dosage: 81 MILLIGRAM, QD (CHEWABLE TABLET)
     Dates: start: 20240129
  8. ASPIRIN [Concomitant]
     Active Substance: ASPIRIN
     Dosage: 81 MG DAILY
     Route: 048
     Dates: start: 20240321
  9. KLONOPIN [Concomitant]
     Active Substance: CLONAZEPAM
     Indication: Product used for unknown indication
     Dosage: 1 TABLET (0.125 MG TOTAL) PER G-TUBE 3 TIMES DAILY DURING ILLNESS OR FEVER FOR 3-5 DAYS
     Dates: start: 20231219
  10. KLONOPIN [Concomitant]
     Active Substance: CLONAZEPAM
     Dosage: 1 TABLET (0.125 MG TOTAL) PER G-TUBE 3 TIMES DAILY DURING ILLNESS OR FEVER FOR 3-5 DAYS
     Dates: start: 20240129
  11. PERIACTIN [Concomitant]
     Active Substance: CYPROHEPTADINE HYDROCHLORIDE
     Indication: Product used for unknown indication
     Dosage: 2.5 ML (1 MG TOTAL) PER G-TUBE 2 TIMES DAILY, SYRUP
     Dates: start: 20230327
  12. PERIACTIN [Concomitant]
     Active Substance: CYPROHEPTADINE HYDROCHLORIDE
     Dosage: 1 MG PER G-TUBE 2 TIMES DAILY
     Dates: start: 20240321
  13. DIASTAT ACUDIAL [Concomitant]
     Active Substance: DIAZEPAM
     Indication: Seizure
     Dosage: 5 MILLIGRAM, PRN, RECTAL 5-7.5-10 MG KIT (RECTAL GEL)
     Route: 054
     Dates: start: 20230211, end: 2023
  14. DIASTAT ACUDIAL [Concomitant]
     Active Substance: DIAZEPAM
     Dosage: 7.5 MILLIGRAM, PRN (RECTAL GEL)
     Route: 054
     Dates: start: 20230824
  15. LANOXIN [Concomitant]
     Active Substance: DIGOXIN
     Indication: Product used for unknown indication
     Dosage: 1 ML (50 MICROGRAM TOTAL) PER G-TUBE 2 TIMES DAILY (50 MCG MICROGRAM PER MILLILITRE SOLUTION)
     Dates: start: 20221020
  16. LANOXIN [Concomitant]
     Active Substance: DIGOXIN
     Dosage: 1 ML (50 MICROGRAM TOTAL) PER G-TUBE 2 TIMES DAILY ((50 MICROGRAM TOTAL) PER G-TUBE 2 TIMES DAILY (5
     Dates: start: 20231127
  17. LANOXIN [Concomitant]
     Active Substance: DIGOXIN
     Dosage: 1 ML (50 MICROGRAM TOTAL) PER J-TUBE 2 TIMES DAILY FOR 30 DAYS ((50 MICROGRAM TOTAL) PER G-TUBE 2 TI
     Dates: start: 20231202
  18. Derma smoothe/fs [Concomitant]
     Indication: Product used for unknown indication
     Dosage: SCALP OIL, APPLY TO SCALP, LEAVE ON OVERNIGHT (0.01 PERCENT)
     Route: 061
     Dates: start: 20230804
  19. Pro Phree [Concomitant]
     Indication: Propionic acidaemia
     Dosage: 50 G PER G-TUBE DAILY (30 GRAMS - G-TUBE)
     Dates: start: 20230622
  20. VIMPAT [Concomitant]
     Active Substance: LACOSAMIDE
     Indication: Product used for unknown indication
     Dosage: 5.5 ML (55 MG TOTAL) PER J-TUBE 2 TIMES DAILY (BID) (10 MG/ML SOLUTION)
     Dates: start: 20231107
  21. VIMPAT [Concomitant]
     Active Substance: LACOSAMIDE
     Dosage: 55 MG, PER G TUBE, 2 TIMES DAILY (10 MG/ML SOLUTION)
     Dates: start: 20240320
  22. VIMPAT [Concomitant]
     Active Substance: LACOSAMIDE
     Dosage: 55 MG, SINGLE PER G TUBE, ONCE (10 MG/ML SOLUTION)
     Dates: start: 20240428, end: 20240428
  23. CULTURELLE [Concomitant]
     Active Substance: LACTOBACILLUS RHAMNOSUS
     Indication: Product used for unknown indication
     Dosage: 1 CAPSULE DAILY
     Route: 048
     Dates: start: 20230805
  24. PREVACID SOLUTAB [Concomitant]
     Active Substance: LANSOPRAZOLE
     Indication: Product used for unknown indication
     Dosage: 0.5 DOSAGE FORM (7.5 MG) (15 MG DISINTEGRATING TABLETS), BID
     Route: 048
     Dates: start: 20231218
  25. PREVACID SOLUTAB [Concomitant]
     Active Substance: LANSOPRAZOLE
     Dosage: 10 MG, 2 TIMES DAILY
     Route: 048
     Dates: start: 20240320
  26. PREVACID SOLUTAB [Concomitant]
     Active Substance: LANSOPRAZOLE
     Dosage: 10 MILLIGRAM, QD (3MG/ML ORAL SOLUTION)
     Dates: start: 20240428, end: 20240428
  27. KEPPRA [Concomitant]
     Active Substance: LEVETIRACETAM
     Indication: Product used for unknown indication
     Dosage: 4 ML (400 MG TOTAL) PER G-TUBE 2 TIMES DAILY (100 MG/ML ORAL SOLUTION)
     Dates: start: 20230413
  28. KEPPRA [Concomitant]
     Active Substance: LEVETIRACETAM
     Dosage: 400 MG, PER G TUBE, 2 TIIMES DAILY (100 MG/ML ORAL SOLUTION)
     Dates: start: 20240320
  29. KEPPRA [Concomitant]
     Active Substance: LEVETIRACETAM
     Dosage: 400 MG, SINGLE, PER G-TUBE, ONCE (100 MG/ML ORAL SOLUTION)
     Dates: start: 20240428, end: 20240428
  30. CARNITOR SF [Concomitant]
     Active Substance: LEVOCARNITINE
     Indication: Product used for unknown indication
     Dosage: 5.5 ML (550 MG TOTAL) BY MOUTH 3 TIMES DAILY (100 MG/ML ORAL SOLUTION)
     Route: 048
     Dates: start: 20230413
  31. CARNITOR SF [Concomitant]
     Active Substance: LEVOCARNITINE
     Dosage: 650 MG, 2 TIMES DAILY
     Route: 048
     Dates: start: 20240320
  32. CARNITOR SF [Concomitant]
     Active Substance: LEVOCARNITINE
     Dosage: 650 MG, SINGLE, PER G-TUBE ONCE
     Dates: start: 20240428, end: 20240428
  33. Propimex-2 [Concomitant]
     Indication: Propionic acidaemia
     Dosage: 25 G DAILY
     Route: 048
     Dates: start: 20231215
  34. MALTODEXTRIN [Concomitant]
     Active Substance: MALTODEXTRIN
     Indication: Propionic acidaemia
     Dosage: 37 G DAILY
     Route: 048
     Dates: start: 20231005
  35. KENALOG [Concomitant]
     Active Substance: TRIAMCINOLONE ACETONIDE
     Indication: Product used for unknown indication
     Dosage: APPLY TOPICALLY 3 TIMES DAILY (0.5 PERCENT CREAM)
     Route: 061
     Dates: start: 20230804
  36. PLAVIX [Concomitant]
     Active Substance: CLOPIDOGREL BISULFATE
     Indication: Product used for unknown indication
     Dosage: 0.16 ML BY PER G TUBE ROUTE DAILY
     Dates: end: 20240128
  37. ACTIGALL [Concomitant]
     Active Substance: URSODIOL
     Indication: Product used for unknown indication
     Dosage: 0.5 MILLILITER
     Route: 048
     Dates: end: 20240128
  38. Propimex-1 [Concomitant]
     Indication: Propionic acidaemia
     Dosage: 14 GRAM DAILY BY FEEDING TUBE (POWDER)
     Dates: start: 20230222, end: 20240222
  39. Dextrose in sodium chloride [Concomitant]
     Indication: Product used for unknown indication
     Dosage: 67ML/HR
     Route: 042
     Dates: start: 20240320
  40. Dextrose in sodium chloride [Concomitant]
     Dosage: 10ML/HR
     Route: 042
     Dates: start: 20240321
  41. Dextrose in sodium chloride [Concomitant]
     Dosage: 44ML/HR
     Route: 042
     Dates: start: 20240321
  42. Dextrose in sodium chloride [Concomitant]
     Dosage: 44ML/HR
     Route: 042
     Dates: start: 20240321
  43. HEPARIN [Concomitant]
     Active Substance: HEPARIN SODIUM
     Indication: Product used for unknown indication
     Dosage: 500 UNITS INTRA-CATHERTER, 3 TIMES DAILY
     Route: 042
     Dates: start: 20240321
  44. MAGNESIUM OXIDE [Concomitant]
     Active Substance: MAGNESIUM OXIDE
     Indication: Product used for unknown indication
     Dosage: 100 MG PER G-TUBE, 2 TIMES DAILY (100 MG TABLET)
     Dates: start: 20240320

REACTIONS (11)
  - Rhinovirus infection [Recovering/Resolving]
  - Gastrointestinal tube removal [Recovering/Resolving]
  - Device occlusion [Recovered/Resolved]
  - Enterovirus infection [Recovering/Resolving]
  - Metabolic acidosis [Recovered/Resolved]
  - Hyperammonaemia [Unknown]
  - Lethargy [Unknown]
  - Vomiting [Recovering/Resolving]
  - Insomnia [Unknown]
  - Secretion discharge [Unknown]
  - Diarrhoea [Unknown]

NARRATIVE: CASE EVENT DATE: 20231128
